FAERS Safety Report 10655652 (Version 1)
Quarter: 2014Q4

REPORT INFORMATION
  Report Type: Spontaneous
  Country: US (occurrence: US)
  Receive Date: 20141216
  Receipt Date: 20141216
  Transmission Date: 20150529
  Serious: Yes (Hospitalization, Other)
  Sender: FDA-Public Use
  Company Number: US-GLAXOSMITHKLINE-US2014034905

PATIENT
  Age: 72 Year
  Sex: Male

DRUGS (5)
  1. ADVAIR DISKUS [Concomitant]
     Active Substance: FLUTICASONE PROPIONATE\SALMETEROL XINAFOATE
  2. VENTOLIN HFA [Suspect]
     Active Substance: ALBUTEROL SULFATE
     Indication: DYSPNOEA
     Dosage: UNK
     Route: 055
  3. CHOLESTEROL MEDICATION (UNKNOWN) [Concomitant]
  4. BLOOD PRESSURE MED [Concomitant]
  5. SPIRIVA [Concomitant]
     Active Substance: TIOTROPIUM BROMIDE MONOHYDRATE

REACTIONS (7)
  - Headache [Recovered/Resolved]
  - Angina pectoris [Recovered/Resolved]
  - Total lung capacity decreased [Unknown]
  - Migraine [Recovered/Resolved]
  - Medication error [Unknown]
  - Blood potassium increased [Recovered/Resolved]
  - Nasopharyngitis [Not Recovered/Not Resolved]

NARRATIVE: CASE EVENT DATE: 201411
